FAERS Safety Report 9465571 (Version 1)
Quarter: 2013Q3

REPORT INFORMATION
  Report Type: Spontaneous
  Country: US (occurrence: US)
  Receive Date: 20130820
  Receipt Date: 20130820
  Transmission Date: 20140515
  Serious: No
  Sender: FDA-Public Use
  Company Number: US-ROXANE LABORATORIES, INC.-2013-RO-01371RO

PATIENT
  Sex: Female

DRUGS (1)
  1. EXEMESTANE [Suspect]
     Indication: BREAST CANCER
     Dosage: 25 MG
     Route: 048
     Dates: start: 201308

REACTIONS (2)
  - Paraesthesia [Not Recovered/Not Resolved]
  - Pruritus [Not Recovered/Not Resolved]
